FAERS Safety Report 22394320 (Version 1)
Quarter: 2023Q2

REPORT INFORMATION
  Report Type: Spontaneous
  Country: US (occurrence: US)
  Receive Date: 20230601
  Receipt Date: 20230601
  Transmission Date: 20230722
  Serious: No
  Sender: FDA-Public Use
  Company Number: US-APIL-2310214US

PATIENT
  Sex: Female

DRUGS (1)
  1. OZURDEX [Suspect]
     Active Substance: DEXAMETHASONE
     Indication: Uveitis
     Dosage: 0.7 MG, SINGLE
     Route: 031

REACTIONS (2)
  - Injection site discharge [Not Recovered/Not Resolved]
  - Intraocular pressure decreased [Recovering/Resolving]

NARRATIVE: CASE EVENT DATE: 20230301
